FAERS Safety Report 23559527 (Version 2)
Quarter: 2024Q1

REPORT INFORMATION
  Report Type: Spontaneous
  Country: US (occurrence: US)
  Receive Date: 20240223
  Receipt Date: 20240305
  Transmission Date: 20240410
  Serious: Yes (Other)
  Sender: FDA-Public Use
  Company Number: US-NALPROPION PHARMACEUTICALS INC.-US-2024CUR000668

PATIENT
  Sex: Female

DRUGS (3)
  1. CONTRAVE [Suspect]
     Active Substance: BUPROPION HYDROCHLORIDE\NALTREXONE HYDROCHLORIDE
     Indication: Weight control
     Dosage: STRENGTH: 8/90 MG, WEEK 1- 1 PILL IN THE MORNING
     Route: 048
     Dates: start: 20240126, end: 20240201
  2. CONTRAVE [Suspect]
     Active Substance: BUPROPION HYDROCHLORIDE\NALTREXONE HYDROCHLORIDE
     Dosage: STRENGTH: 8/90 MG, WEEK 2- 1 PILL IN THE MORNING/1 IN THE EVENING
     Route: 048
     Dates: start: 20240202, end: 20240208
  3. CONTRAVE [Suspect]
     Active Substance: BUPROPION HYDROCHLORIDE\NALTREXONE HYDROCHLORIDE
     Dosage: STRENGTH: 8/90 MG, WEEK 3- 2 PILLS IN THE MORNING/1 IN THE EVENING
     Route: 048
     Dates: start: 20240209, end: 20240213

REACTIONS (6)
  - Major depression [Recovered/Resolved]
  - Suicidal ideation [Recovered/Resolved]
  - Hypersomnia [Recovered/Resolved]
  - Impaired work ability [Recovered/Resolved]
  - Nausea [Recovered/Resolved]
  - Fatigue [Recovered/Resolved]

NARRATIVE: CASE EVENT DATE: 20240101
